FAERS Safety Report 20332142 (Version 3)
Quarter: 2022Q1

REPORT INFORMATION
  Report Type: Report from Study
  Country: FR (occurrence: FR)
  Receive Date: 20220113
  Receipt Date: 20220304
  Transmission Date: 20220424
  Serious: Yes (Hospitalization, Other)
  Sender: FDA-Public Use
  Company Number: FR-BRISTOL-MYERS SQUIBB COMPANY-BMS-2021-144862

PATIENT
  Sex: Female

DRUGS (2)
  1. NIVOLUMAB [Suspect]
     Active Substance: NIVOLUMAB
     Indication: Bile duct cancer stage II
     Dosage: 480 MILLIGRAM
     Route: 042
     Dates: start: 20211012
  2. REGORAFENIB [Suspect]
     Active Substance: REGORAFENIB
     Indication: Bile duct cancer stage II
     Dosage: 30 MILLIGRAM (21 DAYS)
     Route: 048
     Dates: start: 20211012

REACTIONS (1)
  - Renal failure [Not Recovered/Not Resolved]

NARRATIVE: CASE EVENT DATE: 20211127
